FAERS Safety Report 23153580 (Version 5)
Quarter: 2024Q1

REPORT INFORMATION
  Report Type: Spontaneous
  Country: US (occurrence: US)
  Receive Date: 20231107
  Receipt Date: 20240103
  Transmission Date: 20240410
  Serious: Yes (Other)
  Sender: FDA-Public Use
  Company Number: US-PFIZER INC-202300352383

PATIENT
  Age: 12 Year
  Sex: Male
  Weight: 31.746 kg

DRUGS (1)
  1. GENOTROPIN [Suspect]
     Active Substance: SOMATROPIN
     Indication: Dwarfism
     Dosage: 1.3 MG, 1X/DAY (EVERY NIGHT)
     Route: 030
     Dates: start: 202301

REACTIONS (4)
  - Device loosening [Not Recovered/Not Resolved]
  - Wrong technique in device usage process [Unknown]
  - Product prescribing error [Unknown]
  - Off label use [Unknown]

NARRATIVE: CASE EVENT DATE: 20230101
